FAERS Safety Report 7927779-6 (Version None)
Quarter: 2011Q4

REPORT INFORMATION
  Report Type: 
  Country: None (occurrence: None)
  Receive Date: 20111118
  Receipt Date: 20111115
  Transmission Date: 20120403
  Serious: Yes (Other)
  Sender: FDA-Public Use
  Company Number: US-SANOFI-AVENTIS-2011SA075425

PATIENT
  Age: 89 Year
  Sex: Female

DRUGS (9)
  1. MULTAQ [Suspect]
     Indication: ATRIAL FIBRILLATION
     Route: 048
  2. CENTRUM [Concomitant]
  3. PRAVASTATIN [Concomitant]
     Dates: start: 20111113
  4. ATORVASTATIN [Concomitant]
     Dates: end: 20111101
  5. CALCITRIOL [Concomitant]
  6. FISH OIL [Concomitant]
  7. WARFARIN SODIUM [Concomitant]
  8. COENZYME Q10 [Concomitant]
  9. ALL OTHER THERAPEUTIC PRODUCTS [Concomitant]

REACTIONS (1)
  - ATRIAL FIBRILLATION [None]
